FAERS Safety Report 9857000 (Version 1)
Quarter: 2014Q1

REPORT INFORMATION
  Report Type: Spontaneous
  Country: FR (occurrence: None)
  Receive Date: 20140128
  Receipt Date: 20140128
  Transmission Date: 20141002
  Serious: Yes (Hospitalization)
  Sender: FDA-Public Use
  Company Number: 2014000009

PATIENT
  Age: 74 Year
  Sex: Male

DRUGS (7)
  1. ACEON (PERINDOPRIL ERBUMINE) TABLET [Suspect]
     Indication: HYPERTENSION
     Route: 048
     Dates: end: 20131206
  2. TIORFAN [Suspect]
     Indication: GASTROENTERITIS
     Route: 048
     Dates: start: 02031206, end: 20131206
  3. VOGALENE LYOC [Suspect]
     Indication: GASTROENTERITIS
     Route: 048
     Dates: start: 20131206, end: 20131206
  4. TRIMEBUTINE [Suspect]
     Indication: GASTROENTERITIS
     Route: 048
     Dates: start: 20131206, end: 20131206
  5. HELICIDINE [Suspect]
     Indication: GASTROENTERITIS
     Route: 048
     Dates: start: 20131206, end: 20131206
  6. OMIX [Concomitant]
  7. ALLOPURINOL [Concomitant]

REACTIONS (4)
  - Dysphonia [None]
  - Dysphagia [None]
  - Tongue oedema [None]
  - Localised oedema [None]
